FAERS Safety Report 6972608-0 (Version None)
Quarter: 2010Q3

REPORT INFORMATION
  Report Type: 
  Country: None (occurrence: None)
  Receive Date: 20100909
  Receipt Date: 20100831
  Transmission Date: 20110219
  Serious: Yes (Other)
  Sender: FDA-Public Use
  Company Number: JP-SANOFI-AVENTIS-F01200900854

PATIENT
  Age: 83 Year
  Sex: Female
  Weight: 59 kg

DRUGS (14)
  1. CLOPIDOGREL BISULFATE [Suspect]
     Indication: ACUTE CORONARY SYNDROME
     Dosage: DOSE TEXT: STARTING DOSE
     Route: 048
     Dates: start: 20080529, end: 20080529
  2. CLOPIDOGREL BISULFATE [Suspect]
     Indication: ANGINA UNSTABLE
     Dosage: DOSE TEXT: STARTING DOSE
     Route: 048
     Dates: start: 20080529, end: 20080529
  3. CLOPIDOGREL BISULFATE [Suspect]
     Dosage: DOSE TEXT: MAINTENANCE DOSE
     Route: 048
     Dates: start: 20080530
  4. CLOPIDOGREL BISULFATE [Suspect]
     Dosage: DOSE TEXT: MAINTENANCE DOSE
     Route: 048
     Dates: start: 20080530
  5. ASPIRIN [Concomitant]
     Indication: ANGINA UNSTABLE
     Route: 048
     Dates: start: 20080529
  6. HEPARIN [Concomitant]
     Indication: ANGINA UNSTABLE
     Route: 042
     Dates: start: 20080529, end: 20080529
  7. HEPARIN [Concomitant]
     Route: 042
     Dates: start: 20080606, end: 20080606
  8. NEUQUINON [Concomitant]
     Indication: ANGINA UNSTABLE
     Route: 048
  9. SIGMART [Concomitant]
     Indication: ANGINA UNSTABLE
     Route: 048
  10. AZUCURENIN S [Concomitant]
     Indication: GASTRITIS PROPHYLAXIS
     Route: 048
  11. FAMOTIDINE [Concomitant]
     Indication: GASTRITIS PROPHYLAXIS
     Route: 048
  12. SEPAMIT [Concomitant]
     Route: 048
  13. MAGNESIUM OXIDE [Concomitant]
     Route: 048
  14. MYSLEE [Concomitant]
     Route: 048

REACTIONS (1)
  - IN-STENT CORONARY ARTERY RESTENOSIS [None]
